FAERS Safety Report 6619041-9 (Version None)
Quarter: 2010Q1

REPORT INFORMATION
  Report Type: 
  Country: None (occurrence: None)
  Receive Date: 20100308
  Receipt Date: 20100226
  Transmission Date: 20100710
  Serious: Yes (Other)
  Sender: FDA-Public Use
  Company Number: FR-ABBOTT-10P-056-0627608-00

PATIENT
  Age: 68 Year
  Sex: Male

DRUGS (1)
  1. SECALIP [Suspect]
     Indication: HYPERCHOLESTEROLAEMIA
     Route: 048
     Dates: end: 20090101

REACTIONS (1)
  - PULMONARY FIBROSIS [None]
